FAERS Safety Report 4301103-2 (Version None)
Quarter: 2004Q1

REPORT INFORMATION
  Report Type: 
  Country: None (occurrence: None)
  Receive Date: 20040219
  Receipt Date: 20040204
  Transmission Date: 20041129
  Serious: Yes (Disabling)
  Sender: FDA-Public Use
  Company Number: 2004IM000250

PATIENT
  Age: 51 Year
  Sex: Male

DRUGS (6)
  1. ADVAFERON (A643_INTERFERON ALFACON-1) [Suspect]
     Indication: HEPATITIS C
     Dosage: 18 MU;QD;SUBCUTANEOUS
     Route: 058
     Dates: start: 20020225, end: 20020311
  2. ENALAPRIL MALEATE [Concomitant]
  3. AMLODIPINE BESYLATE [Concomitant]
  4. ALLOPURINOL [Concomitant]
  5. MARZULENE S [Concomitant]
  6. URSODEOXYCHOLIC ACID [Concomitant]

REACTIONS (1)
  - RETINAL VEIN THROMBOSIS [None]
